FAERS Safety Report 6938273-3 (Version None)
Quarter: 2010Q3

REPORT INFORMATION
  Report Type: 
  Country: None (occurrence: None)
  Receive Date: 20100824
  Receipt Date: 20100812
  Transmission Date: 20110219
  Serious: Yes (Other)
  Sender: FDA-Public Use
  Company Number: US-ELI_LILLY_AND_COMPANY-US201008004165

PATIENT
  Sex: Female

DRUGS (5)
  1. HUMALOG [Suspect]
     Indication: DIABETES MELLITUS
     Dosage: UNK, 3/D
  2. HUMALOG [Suspect]
     Dosage: UNK, 3/D
  3. HUMALOG [Suspect]
     Dosage: UNK, 3/D
  4. HUMULIN 70/30 [Suspect]
     Indication: DIABETES MELLITUS
  5. LANTUS [Concomitant]
     Dosage: UNK, EACH EVENING

REACTIONS (6)
  - ABDOMINAL MASS [None]
  - FAT TISSUE INCREASED [None]
  - VISUAL ACUITY REDUCED [None]
  - WAIST CIRCUMFERENCE INCREASED [None]
  - WEIGHT INCREASED [None]
  - WOUND [None]
